FAERS Safety Report 15123252 (Version 2)
Quarter: 2018Q3

REPORT INFORMATION
  Report Type: Spontaneous
  Country: US (occurrence: US)
  Receive Date: 20180709
  Receipt Date: 20180713
  Transmission Date: 20181010
  Serious: No
  Sender: FDA-Public Use
  Company Number: PHEH2018US028109

PATIENT

DRUGS (1)
  1. CIPRODEX [Suspect]
     Active Substance: CIPROFLOXACIN HYDROCHLORIDE\DEXAMETHASONE
     Indication: PRODUCT USED FOR UNKNOWN INDICATION
     Dosage: 4 GTT, UNK
     Route: 001
     Dates: start: 20180620

REACTIONS (4)
  - Heart rate irregular [Unknown]
  - Chills [Unknown]
  - Frustration tolerance decreased [Unknown]
  - Insomnia [Unknown]
